FAERS Safety Report 21309541 (Version 1)
Quarter: 2022Q3

REPORT INFORMATION
  Report Type: Spontaneous
  Country: US (occurrence: US)
  Receive Date: 20220908
  Receipt Date: 20220908
  Transmission Date: 20221027
  Serious: No
  Sender: FDA-Public Use
  Company Number: US-BRAINTREE LABORATORIES, INC.-2022BTE00567

PATIENT
  Age: 32 Year
  Sex: Male
  Weight: 96.145 kg

DRUGS (4)
  1. SUPREP BOWEL PREP [Suspect]
     Active Substance: MAGNESIUM SULFATE\POTASSIUM SULFATE\SODIUM SULFATE
     Indication: Colonoscopy
     Dosage: 1 X 6 OZ. BOTTLE, 1X
     Route: 048
     Dates: start: 20220629
  2. TOPIRAMATE [Concomitant]
     Active Substance: TOPIRAMATE
  3. ABILIFY [Concomitant]
     Active Substance: ARIPIPRAZOLE
  4. CITALOPRAM [Concomitant]
     Active Substance: CITALOPRAM HYDROBROMIDE

REACTIONS (1)
  - Vomiting [Recovered/Resolved]

NARRATIVE: CASE EVENT DATE: 20220629
